FAERS Safety Report 5916234-0 (Version None)
Quarter: 2008Q4

REPORT INFORMATION
  Report Type: 
  Country: None (occurrence: None)
  Receive Date: 20081013
  Receipt Date: 20081006
  Transmission Date: 20090506
  Serious: Yes (Life-Threatening, Hospitalization)
  Sender: FDA-Public Use
  Company Number: ES-AVENTIS-200815434EU

PATIENT
  Age: 47 Year
  Sex: Female

DRUGS (6)
  1. SEGURIL                            /00032601/ [Suspect]
     Route: 048
     Dates: start: 20080601, end: 20080627
  2. ENALAPRIL MALEATE [Suspect]
     Route: 048
     Dates: start: 20080601, end: 20080827
  3. ALDACTONE [Suspect]
     Route: 048
     Dates: start: 20080601, end: 20080627
  4. OMEPRAZOLE [Concomitant]
     Indication: GASTRITIS PROPHYLAXIS
     Route: 048
     Dates: start: 20080601
  5. FLUOXETINE [Concomitant]
     Indication: DEPRESSION
     Route: 048
     Dates: start: 20080601
  6. DIGOXINE [Concomitant]
     Route: 048
     Dates: start: 20080601

REACTIONS (2)
  - DRUG INTERACTION [None]
  - RENAL IMPAIRMENT [None]
